FAERS Safety Report 24914432 (Version 1)
Quarter: 2025Q1

REPORT INFORMATION
  Report Type: Spontaneous
  Country: US (occurrence: US)
  Receive Date: 20250203
  Receipt Date: 20250203
  Transmission Date: 20250409
  Serious: Yes (Other)
  Sender: BRISTOL-MYERS SQUIBB COMPANY
  Company Number: US-BRISTOL-MYERS SQUIBB COMPANY-2025-015402

PATIENT
  Age: 7 Decade
  Sex: Female

DRUGS (3)
  1. IPILIMUMAB [Suspect]
     Active Substance: IPILIMUMAB
     Indication: Metastatic malignant melanoma
  2. NIVOLUMAB [Suspect]
     Active Substance: NIVOLUMAB
     Indication: Metastatic malignant melanoma
  3. NIVOLUMAB [Suspect]
     Active Substance: NIVOLUMAB

REACTIONS (3)
  - Immune-mediated hepatitis [Unknown]
  - Colitis ulcerative [Unknown]
  - Immune-mediated arthritis [Recovered/Resolved]
